FAERS Safety Report 10567781 (Version 1)
Quarter: 2014Q4

REPORT INFORMATION
  Report Type: Spontaneous
  Country: US (occurrence: None)
  Receive Date: 20141105
  Receipt Date: 20141105
  Transmission Date: 20150529
  Serious: No
  Sender: FDA-Public Use
  Company Number: None

PATIENT
  Age: 30 Year
  Sex: Male
  Weight: 146.06 kg

DRUGS (4)
  1. ALLOPURINOL. [Concomitant]
     Active Substance: ALLOPURINOL
  2. RISPERIDONE. [Concomitant]
     Active Substance: RISPERIDONE
  3. ZETIA [Suspect]
     Active Substance: EZETIMIBE
     Indication: BLOOD CHOLESTEROL INCREASED
     Dosage: 10 MG 30 PILLS ONCE DAILY BY MOUTH
     Route: 048
     Dates: start: 20140929, end: 20141003
  4. BENZTROPINE MESYLATE. [Concomitant]
     Active Substance: BENZTROPINE MESYLATE

REACTIONS (6)
  - Diarrhoea [None]
  - Back pain [None]
  - Dyspnoea [None]
  - Pharyngeal oedema [None]
  - Cough [None]
  - Arthralgia [None]

NARRATIVE: CASE EVENT DATE: 20140929
